FAERS Safety Report 7474793-3 (Version None)
Quarter: 2011Q2

REPORT INFORMATION
  Report Type: 
  Country: None (occurrence: None)
  Receive Date: 20110512
  Receipt Date: 20110505
  Transmission Date: 20111010
  Serious: Yes (Hospitalization, Other)
  Sender: FDA-Public Use
  Company Number: US-BAYER-200912233NA

PATIENT
  Age: 19 Year
  Sex: Female
  Weight: 57 kg

DRUGS (14)
  1. PERCOCET [Concomitant]
     Dosage: 5/325 MG Q6 HOURS
  2. OXYCONTIN [Concomitant]
  3. POLYETHYLENE GLYCOL [Concomitant]
  4. MULTIVITAMINS PLUS IRON [Concomitant]
  5. YAZ [Suspect]
     Indication: ACNE
  6. LEXAPRO [Concomitant]
     Dosage: 20 MG (DAILY DOSE), QD,
  7. NASONEX [Concomitant]
  8. PROMETHAZINE [Concomitant]
  9. WARFARIN [Concomitant]
  10. YAZ [Suspect]
     Indication: MENSTRUATION IRREGULAR
     Route: 048
     Dates: start: 20080901, end: 20090105
  11. XANAX [Concomitant]
  12. OMEPRAZOLE [Concomitant]
     Dosage: 20 MG (DAILY DOSE), QD,
  13. TORADOL [Concomitant]
  14. VENTOLIN [Concomitant]

REACTIONS (6)
  - HEADACHE [None]
  - PAIN [None]
  - ANXIETY [None]
  - INTRACRANIAL VENOUS SINUS THROMBOSIS [None]
  - INJURY [None]
  - DEEP VEIN THROMBOSIS [None]
